FAERS Safety Report 24766011 (Version 1)
Quarter: 2024Q4

REPORT INFORMATION
  Report Type: Spontaneous
  Country: BG (occurrence: BG)
  Receive Date: 20241223
  Receipt Date: 20241223
  Transmission Date: 20250115
  Serious: Yes (Hospitalization)
  Sender: ROCHE
  Company Number: BG-ROCHE-10000162966

PATIENT
  Sex: Female
  Weight: 3.2 kg

DRUGS (3)
  1. OCREVUS [Suspect]
     Active Substance: OCRELIZUMAB
     Indication: Product used for unknown indication
     Route: 064
  2. ENGERIX-B [Concomitant]
     Active Substance: HEPATITIS B VIRUS SUBTYPE ADW2 HBSAG SURFACE PROTEIN ANTIGEN
     Dates: start: 20240821
  3. BCG VACCINE [Concomitant]
     Active Substance: BCG VACCINE
     Dates: start: 20240822

REACTIONS (9)
  - Foetal exposure during pregnancy [Unknown]
  - Neonatal disorder [Recovered/Resolved]
  - Cyanosis [Recovered/Resolved]
  - Hypotonia [Recovered/Resolved]
  - Rales [Recovered/Resolved]
  - Wheezing [Recovered/Resolved]
  - Hyperbilirubinaemia [Recovered/Resolved]
  - Premature baby [Unknown]
  - Asphyxia [Recovered/Resolved]
